FAERS Safety Report 8909206 (Version 1)
Quarter: 2012Q4

REPORT INFORMATION
  Report Type: Spontaneous
  Country: DE (occurrence: None)
  Receive Date: 20121107
  Receipt Date: 20121107
  Transmission Date: 20130627
  Serious: Yes (Other)
  Sender: FDA-Public Use
  Company Number: AUR-APL-2012-04568

PATIENT
  Age: 42 Year
  Sex: Male

DRUGS (1)
  1. SERTRALINE (SERTRALINE) (SERTRALINE) [Suspect]
     Indication: DEPRESSION
     Route: 048

REACTIONS (4)
  - Dizziness [None]
  - Paraesthesia [None]
  - Ventricular tachycardia [None]
  - Myocardial infarction [None]
